APPROVED DRUG PRODUCT: SOTRADECOL
Active Ingredient: SODIUM TETRADECYL SULFATE
Strength: 1% **Federal Register determination that product was not discontinued or withdrawn for safety or effectiveness reasons**
Dosage Form/Route: INJECTABLE;INJECTION
Application: N005970 | Product #004
Applicant: ELKINS SINN DIV AH ROBINS CO INC
Approved: Approved Prior to Jan 1, 1982 | RLD: Yes | RS: No | Type: DISCN